FAERS Safety Report 25401622 (Version 1)
Quarter: 2025Q2

REPORT INFORMATION
  Report Type: Report from Study
  Country: IL (occurrence: IL)
  Receive Date: 20250605
  Receipt Date: 20250605
  Transmission Date: 20250717
  Serious: Yes (Other)
  Sender: EMD SERONO INC
  Company Number: IL-Merck Healthcare KGaA-2025027185

PATIENT
  Age: 29 Year
  Sex: Female

DRUGS (1)
  1. MAVENCLAD [Suspect]
     Active Substance: CLADRIBINE
     Indication: Multiple sclerosis

REACTIONS (2)
  - Abortion spontaneous [Recovered/Resolved]
  - Maternal exposure timing unspecified [Recovered/Resolved]
